FAERS Safety Report 5636802-3 (Version None)
Quarter: 2008Q1

REPORT INFORMATION
  Report Type: 
  Country: None (occurrence: None)
  Receive Date: 20080219
  Receipt Date: 20080219
  Transmission Date: 20080703
  Serious: No
  Sender: FDA-Public Use
  Company Number: None

PATIENT
  Age: 85 Year
  Sex: Male

DRUGS (1)
  1. INSULIN [Suspect]
     Dosage: SLIDING SCALE SQ
     Route: 058
     Dates: start: 20070612, end: 20070719

REACTIONS (2)
  - HYPOGLYCAEMIA [None]
  - SYNCOPE [None]
